FAERS Safety Report 5367643-2 (Version None)
Quarter: 2007Q2

REPORT INFORMATION
  Report Type: 
  Country: None (occurrence: None)
  Receive Date: 20070622
  Receipt Date: 20070119
  Transmission Date: 20071010
  Serious: No
  Sender: FDA-Public Use
  Company Number: US-ASTRAZENECA-2007UW01124

PATIENT
  Age: 83 Year
  Sex: Female
  Weight: 63.5 kg

DRUGS (9)
  1. PULMICORT RESPULES [Suspect]
     Indication: ASTHMA
     Route: 055
  2. LORAZEPAM [Concomitant]
  3. OXYBUTYNIN [Concomitant]
  4. TYLENOL COUGH [Concomitant]
  5. SLEEPING PILL [Concomitant]
  6. COLACE [Concomitant]
  7. GAS-X [Concomitant]
  8. ALBUTEROL [Concomitant]
  9. IPRATROPIUM BROMIDE [Concomitant]

REACTIONS (1)
  - DYSPNOEA [None]
